FAERS Safety Report 16367186 (Version 1)
Quarter: 2019Q2

REPORT INFORMATION
  Report Type: Spontaneous
  Country: US (occurrence: US)
  Receive Date: 20190423
  Receipt Date: 20190423
  Transmission Date: 20190711
  Serious: No
  Sender: FDA-Public Use
  Company Number: None

PATIENT
  Age: 27 Year
  Sex: Female

DRUGS (1)
  1. REBIF REBIDOSE [Suspect]
     Active Substance: INTERFERON BETA-1A
     Dates: start: 201903

REACTIONS (4)
  - Memory impairment [None]
  - Product dose omission [None]
  - Chills [None]
  - Headache [None]

NARRATIVE: CASE EVENT DATE: 20190326
